FAERS Safety Report 9422473 (Version 1)
Quarter: 2013Q3

REPORT INFORMATION
  Report Type: Spontaneous
  Country: US (occurrence: None)
  Receive Date: 20130724
  Receipt Date: 20130724
  Transmission Date: 20140515
  Serious: Yes (Death, Other)
  Sender: FDA-Public Use
  Company Number: AUR-APL-2013-06085

PATIENT
  Age: 28 Year
  Sex: Male

DRUGS (4)
  1. OXYCODONE [Suspect]
     Indication: PRODUCT USED FOR UNKNOWN INDICATION
  2. ACETAMINOPHEN (PARACETAMOL) [Concomitant]
  3. QUETIAPINE (QUETIAPINE) [Concomitant]
  4. TRAZODONE (TRAZODONE) [Concomitant]

REACTIONS (8)
  - Somnolence [None]
  - Pulmonary congestion [None]
  - Drug abuse [None]
  - Self-medication [None]
  - Urinary retention [None]
  - Depressed level of consciousness [None]
  - Accidental death [None]
  - Toxicity to various agents [None]
